FAERS Safety Report 5964834-4 (Version None)
Quarter: 2008Q4

REPORT INFORMATION
  Report Type: 
  Country: None (occurrence: None)
  Receive Date: 20081120
  Receipt Date: 20081105
  Transmission Date: 20090506
  Serious: Yes (Hospitalization)
  Sender: FDA-Public Use
  Company Number: 2008S1020004

PATIENT
  Age: 60 Year
  Sex: Female

DRUGS (5)
  1. ERYTHROMYCIN [Suspect]
     Indication: EAR INFECTION
     Dosage: 500 MG;ORAL
     Route: 048
     Dates: start: 20081020, end: 20081020
  2. MECYSTEINE [Concomitant]
  3. SYMBICORT [Concomitant]
  4. TERTUBALINE [Concomitant]
  5. THEOPHYLLINE [Concomitant]

REACTIONS (2)
  - DYSPNOEA [None]
  - HYPERTENSION [None]
